FAERS Safety Report 5995919-4 (Version None)
Quarter: 2008Q4

REPORT INFORMATION
  Report Type: 
  Country: None (occurrence: None)
  Receive Date: 20081212
  Receipt Date: 20081003
  Transmission Date: 20090506
  Serious: No
  Sender: FDA-Public Use
  Company Number: US-ABBOTT-08P-163-0479891-00

PATIENT
  Sex: Female
  Weight: 106.24 kg

DRUGS (3)
  1. HUMIRA [Suspect]
     Indication: RHEUMATOID ARTHRITIS
     Route: 058
     Dates: start: 20070201
  2. HUMIRA [Suspect]
     Indication: ANKYLOSING SPONDYLITIS
  3. VENLAFAXINE HCL [Suspect]
     Indication: ANXIETY
     Route: 048
     Dates: start: 20071101, end: 20080601

REACTIONS (15)
  - ARTHRALGIA [None]
  - ARTHROPATHY [None]
  - HYPOPHAGIA [None]
  - INSOMNIA [None]
  - JOINT STIFFNESS [None]
  - JOINT SWELLING [None]
  - JOINT WARMTH [None]
  - LOCAL SWELLING [None]
  - MIGRAINE [None]
  - MUSCULOSKELETAL STIFFNESS [None]
  - OEDEMA PERIPHERAL [None]
  - PAIN IN EXTREMITY [None]
  - PAIN IN JAW [None]
  - TENDON DISORDER [None]
  - WEIGHT INCREASED [None]
